FAERS Safety Report 18039758 (Version 1)
Quarter: 2020Q3

REPORT INFORMATION
  Report Type: Spontaneous
  Country: CN (occurrence: CN)
  Receive Date: 20200717
  Receipt Date: 20200717
  Transmission Date: 20201103
  Serious: Yes (Other)
  Sender: FDA-Public Use
  Company Number: CN-ASTRAZENECA-2020SE88921

PATIENT
  Age: 15401 Day
  Sex: Female
  Weight: 55 kg

DRUGS (2)
  1. VENTOLIN [Suspect]
     Active Substance: ALBUTEROL SULFATE
     Indication: SPUTUM INCREASED
     Route: 055
     Dates: start: 20200611, end: 20200611
  2. PULMICORT RESPULES [Suspect]
     Active Substance: BUDESONIDE
     Indication: SPUTUM INCREASED
     Route: 055
     Dates: start: 20200611, end: 20200611

REACTIONS (5)
  - Electrocardiogram ST segment depression [Unknown]
  - Palpitations [Recovering/Resolving]
  - Supraventricular extrasystoles [Unknown]
  - Sinus tachycardia [Unknown]
  - Electrocardiogram U wave present [Unknown]

NARRATIVE: CASE EVENT DATE: 20200611
